FAERS Safety Report 8132619-9 (Version None)
Quarter: 2012Q1

REPORT INFORMATION
  Report Type: 
  Country: None (occurrence: None)
  Receive Date: 20120213
  Receipt Date: 20120207
  Transmission Date: 20120608
  Serious: Yes (Hospitalization)
  Sender: FDA-Public Use
  Company Number: US-GLAXOSMITHKLINE-A0953940A

PATIENT
  Age: 80 Year
  Sex: Male
  Weight: 69.1 kg

DRUGS (6)
  1. VOTRIENT [Suspect]
     Indication: NEOPLASM MALIGNANT
     Dosage: 800MG PER DAY
     Route: 048
     Dates: start: 20111017
  2. VITAMIN D [Concomitant]
  3. THYROID MEDICATION [Concomitant]
  4. ZOCOR [Concomitant]
  5. CARDURA [Concomitant]
  6. NORVASC [Concomitant]

REACTIONS (2)
  - RASH [None]
  - BLISTER [None]
